FAERS Safety Report 8121158 (Version 6)
Quarter: 2020Q2

REPORT INFORMATION
  Report Type: Report from Study
  Country: CA (occurrence: CA)
  Receive Date: 20110906
  Receipt Date: 20200518
  Transmission Date: 20200714
  Serious: Yes (Life-Threatening, Hospitalization, Other)
  Sender: FDA-Public Use
  Company Number: CA-ROCHE-799773

PATIENT
  Age: 56 Year
  Sex: Male
  Weight: 108.9 kg

DRUGS (8)
  1. ACTEMRA [Suspect]
     Active Substance: TOCILIZUMAB
     Indication: RHEUMATOID ARTHRITIS
     Route: 042
     Dates: start: 20101012, end: 20110822
  2. PREDNISONE. [Concomitant]
     Active Substance: PREDNISONE
  3. METHOTREXATE. [Suspect]
     Active Substance: METHOTREXATE
     Indication: PRODUCT USED FOR UNKNOWN INDICATION
     Route: 065
  4. OXAZEPAM. [Concomitant]
     Active Substance: OXAZEPAM
  5. RAMIPRIL. [Concomitant]
     Active Substance: RAMIPRIL
  6. LIPITOR [Suspect]
     Active Substance: ATORVASTATIN CALCIUM
     Indication: BLOOD CHOLESTEROL INCREASED
     Route: 065
     Dates: end: 2015
  7. CIMZIA [Suspect]
     Active Substance: CERTOLIZUMAB PEGOL
     Indication: RHEUMATOID ARTHRITIS
     Route: 058
  8. FOLIC ACID. [Concomitant]
     Active Substance: FOLIC ACID

REACTIONS (9)
  - Asthenia [Recovering/Resolving]
  - Asthenia [Not Recovered/Not Resolved]
  - Blood cholesterol increased [Recovering/Resolving]
  - Unevaluable investigation [Recovering/Resolving]
  - Pneumonia [Recovering/Resolving]
  - Blood cholesterol increased [Unknown]
  - Muscle enzyme increased [Recovering/Resolving]
  - Myocardial infarction [Recovering/Resolving]
  - Myocardial infarction [Unknown]

NARRATIVE: CASE EVENT DATE: 20110829
